FAERS Safety Report 5764746-5 (Version None)
Quarter: 2008Q2

REPORT INFORMATION
  Report Type: 
  Country: None (occurrence: None)
  Receive Date: 20080611
  Receipt Date: 20080529
  Transmission Date: 20081010
  Serious: Yes (Other)
  Sender: FDA-Public Use
  Company Number: US-MERCK-0805USA06200

PATIENT
  Age: 11 Year
  Sex: Male

DRUGS (4)
  1. SINGULAIR [Suspect]
     Indication: HYPERSENSITIVITY
     Route: 048
  2. SINGULAIR [Suspect]
     Indication: ASTHMA
     Route: 048
  3. FLONASE [Concomitant]
     Route: 065
  4. ALBUTEROL [Concomitant]
     Route: 065

REACTIONS (1)
  - SELF-INJURIOUS IDEATION [None]
